FAERS Safety Report 5472606-2 (Version None)
Quarter: 2007Q4

REPORT INFORMATION
  Report Type: 
  Country: None (occurrence: None)
  Receive Date: 20071001
  Receipt Date: 20070102
  Transmission Date: 20080405
  Serious: Yes (Other)
  Sender: FDA-Public Use
  Company Number: US-ASTRAZENECA-2006UW01780

PATIENT
  Age: 64 Year
  Sex: Female
  Weight: 61.2 kg

DRUGS (5)
  1. ARIMIDEX [Suspect]
     Indication: BREAST CANCER
     Route: 048
     Dates: start: 20030601
  2. ARIMIDEX [Suspect]
     Indication: BREAST CANCER RECURRENT
     Route: 048
     Dates: start: 20030601
  3. XANAX [Concomitant]
  4. EFFEXOR XR [Concomitant]
  5. ACTONEL [Concomitant]

REACTIONS (7)
  - ARTHRALGIA [None]
  - BLOOD CHOLESTEROL INCREASED [None]
  - BLOOD PRESSURE INCREASED [None]
  - KNEE ARTHROPLASTY [None]
  - NIGHT SWEATS [None]
  - OSTEOPENIA [None]
  - WEIGHT INCREASED [None]
